FAERS Safety Report 9301686 (Version 2)
Quarter: 2013Q2

REPORT INFORMATION
  Report Type: Report from Study
  Country: US (occurrence: US)
  Receive Date: 20130521
  Receipt Date: 20130531
  Transmission Date: 20140414
  Serious: Yes (Death)
  Sender: FDA-Public Use
  Company Number: US-ACTELION-A-US2013-83295

PATIENT
  Age: 72 Year
  Sex: Male

DRUGS (4)
  1. TRACLEER [Suspect]
     Indication: PULMONARY ARTERIAL HYPERTENSION
     Dosage: UNK
     Route: 048
     Dates: end: 20130510
  2. ADCIRCA [Concomitant]
  3. COUMADIN [Concomitant]
  4. FLOLAN [Concomitant]

REACTIONS (1)
  - Right ventricular failure [Fatal]
